FAERS Safety Report 21854147 (Version 1)
Quarter: 2023Q1

REPORT INFORMATION
  Report Type: Spontaneous
  Country: US (occurrence: None)
  Receive Date: 20230111
  Receipt Date: 20230111
  Transmission Date: 20230418
  Serious: Yes (Death)
  Sender: FDA-Public Use
  Company Number: None

PATIENT
  Age: 67 Year
  Sex: Male
  Weight: 112 kg

DRUGS (1)
  1. OLAPARIB [Suspect]
     Active Substance: OLAPARIB
     Indication: Prostate cancer metastatic

REACTIONS (9)
  - Barotrauma [None]
  - Subcutaneous emphysema [None]
  - Pneumonitis [None]
  - Acute kidney injury [None]
  - Hypotension [None]
  - Shock [None]
  - Anaemia [None]
  - Thrombocytopenia [None]
  - Encephalopathy [None]

NARRATIVE: CASE EVENT DATE: 20221202
